FAERS Safety Report 11831580 (Version 1)
Quarter: 2015Q4

REPORT INFORMATION
  Report Type: Spontaneous
  Country: US (occurrence: None)
  Receive Date: 20151211
  Receipt Date: 20151211
  Transmission Date: 20160305
  Serious: Yes (Other)
  Sender: FDA-Public Use
  Company Number: None

PATIENT
  Age: 29 Year
  Sex: Female
  Weight: 81.65 kg

DRUGS (3)
  1. DULOXETINE 60 MG TEVA [Suspect]
     Active Substance: DULOXETINE
     Indication: MAJOR DEPRESSION
     Dosage: 2 PILLS
     Route: 048
  2. ADDERALL XR [Concomitant]
     Active Substance: AMPHETAMINE ASPARTATE\AMPHETAMINE SULFATE\DEXTROAMPHETAMINE SACCHARATE\DEXTROAMPHETAMINE SULFATE
  3. ABILIFY [Concomitant]
     Active Substance: ARIPIPRAZOLE

REACTIONS (6)
  - Lethargy [None]
  - Hypersomnia [None]
  - Depression [None]
  - Product substitution issue [None]
  - Suicidal ideation [None]
  - Drug effect decreased [None]

NARRATIVE: CASE EVENT DATE: 20150721
